FAERS Safety Report 5041385-5 (Version None)
Quarter: 2006Q2

REPORT INFORMATION
  Report Type: 
  Country: None (occurrence: None)
  Receive Date: 20060626
  Receipt Date: 20060606
  Transmission Date: 20061013
  Serious: Yes (Other)
  Sender: FDA-Public Use
  Company Number: A03200603203

PATIENT
  Sex: Female

DRUGS (6)
  1. AMBIEN [Suspect]
     Indication: INSOMNIA
     Dosage: 12.5  MG ONCE - ORAL
     Route: 048
     Dates: start: 20060221, end: 20060222
  2. METFORMIN [Concomitant]
  3. ROSIGLITAZONE MALEATE [Concomitant]
  4. LANSOPRAZOLE [Concomitant]
  5. CLOPIDOGREL BISULFATE [Concomitant]
  6. DULOXETINE [Concomitant]

REACTIONS (4)
  - ACTIVITIES OF DAILY LIVING IMPAIRED [None]
  - FALL [None]
  - HAND FRACTURE [None]
  - LOSS OF CONSCIOUSNESS [None]
